FAERS Safety Report 23945896 (Version 1)
Quarter: 2024Q2

REPORT INFORMATION
  Report Type: Other
  Country: CN (occurrence: CN)
  Receive Date: 20240606
  Receipt Date: 20240606
  Transmission Date: 20240716
  Serious: Yes (Hospitalization, Other)
  Sender: FDA-Public Use
  Company Number: CN-Nuvo Pharmaceuticals Inc-2157838

PATIENT
  Age: 47 Year
  Sex: Female

DRUGS (1)
  1. POLYETHYLENE GLYCOL 3350 [Suspect]
     Active Substance: POLYETHYLENE GLYCOL 3350
     Indication: Colonoscopy
     Route: 065

REACTIONS (3)
  - Hyponatraemic encephalopathy [Recovered/Resolved]
  - Diarrhoea [Recovered/Resolved]
  - Brain oedema [Recovered/Resolved]
